FAERS Safety Report 23080715 (Version 1)
Quarter: 2023Q4

REPORT INFORMATION
  Report Type: Spontaneous
  Country: US (occurrence: US)
  Receive Date: 20231018
  Receipt Date: 20231018
  Transmission Date: 20240110
  Serious: Yes (Life-Threatening, Hospitalization, Other)
  Sender: FDA-Public Use
  Company Number: US-FOUNDATIONCONSUMERHC-2023-US-032341

PATIENT
  Age: 34 Year
  Sex: Female
  Weight: 68.04 kg

DRUGS (1)
  1. TAKE ACTION [Suspect]
     Active Substance: LEVONORGESTREL
     Indication: Post coital contraception
     Dosage: 1.5MG X 1
     Route: 048
     Dates: start: 20230824, end: 20230824

REACTIONS (6)
  - Vaginal haemorrhage [Recovered/Resolved]
  - Haemoglobin decreased [Recovered/Resolved]
  - Ruptured ectopic pregnancy [Recovered/Resolved]
  - Internal haemorrhage [Recovered/Resolved]
  - Drug ineffective [Unknown]
  - Salpingectomy [Recovered/Resolved]

NARRATIVE: CASE EVENT DATE: 20230824
